FAERS Safety Report 15225832 (Version 1)
Quarter: 2018Q3

REPORT INFORMATION
  Report Type: Spontaneous
  Country: US (occurrence: US)
  Receive Date: 20180801
  Receipt Date: 20180801
  Transmission Date: 20181010
  Serious: Yes (Other)
  Sender: FDA-Public Use
  Company Number: US-SA-2018SA206346

PATIENT
  Age: 69 Year
  Sex: Female

DRUGS (3)
  1. FUROSEMIDE. [Concomitant]
     Active Substance: FUROSEMIDE
  2. HUMALOG [Concomitant]
     Active Substance: INSULIN LISPRO
  3. LANTUS [Suspect]
     Active Substance: INSULIN GLARGINE
     Indication: TYPE 2 DIABETES MELLITUS
     Dosage: 25 U, BID
     Route: 065

REACTIONS (7)
  - Weight increased [Unknown]
  - Syncope [Unknown]
  - Depression [Unknown]
  - Blood glucose abnormal [Unknown]
  - Renal failure [Unknown]
  - Cardiac failure chronic [Unknown]
  - Blood glucose increased [Unknown]
